FAERS Safety Report 10614848 (Version 1)
Quarter: 2014Q4

REPORT INFORMATION
  Report Type: Spontaneous
  Country: AL (occurrence: AL)
  Receive Date: 20141201
  Receipt Date: 20141201
  Transmission Date: 20150529
  Serious: Yes (Death)
  Sender: FDA-Public Use
  Company Number: AL-ROCHE-1497255

PATIENT
  Age: 39 Year
  Sex: Female

DRUGS (1)
  1. MIRCERA [Suspect]
     Active Substance: PEGZEREPOETIN ALFA
     Indication: CHRONIC KIDNEY DISEASE
     Route: 065

REACTIONS (1)
  - Stevens-Johnson syndrome [Fatal]
